FAERS Safety Report 15220868 (Version 2)
Quarter: 2018Q3

REPORT INFORMATION
  Report Type: Spontaneous
  Country: IT (occurrence: IT)
  Receive Date: 20180731
  Receipt Date: 20180828
  Transmission Date: 20181010
  Serious: Yes (Hospitalization)
  Sender: FDA-Public Use
  Company Number: PHHY2018IT061167

PATIENT
  Age: 86 Year
  Sex: Male

DRUGS (1)
  1. ACETYLSALICYLIC ACID [Suspect]
     Active Substance: ASPIRIN
     Indication: VERTIGO
     Dosage: 100 MG, QD
     Route: 048
     Dates: start: 20161003, end: 20180518

REACTIONS (3)
  - Subarachnoid haemorrhage [Recovering/Resolving]
  - Headache [Recovering/Resolving]
  - Oedema [Recovering/Resolving]

NARRATIVE: CASE EVENT DATE: 20180518
